FAERS Safety Report 10175204 (Version 1)
Quarter: 2014Q2

REPORT INFORMATION
  Report Type: Spontaneous
  Country: US (occurrence: US)
  Receive Date: 20140515
  Receipt Date: 20140515
  Transmission Date: 20141212
  Serious: No
  Sender: FDA-Public Use
  Company Number: US-VIVUS-2014V1000093

PATIENT
  Sex: Female

DRUGS (11)
  1. QSYMIA 7.5MG/46MG [Suspect]
     Indication: PRODUCT USED FOR UNKNOWN INDICATION
     Route: 048
     Dates: start: 201310
  2. ZOCOR [Concomitant]
     Indication: PRODUCT USED FOR UNKNOWN INDICATION
  3. TOVIAZ ER [Concomitant]
     Indication: PRODUCT USED FOR UNKNOWN INDICATION
  4. PRILOSEC DR [Concomitant]
     Indication: PRODUCT USED FOR UNKNOWN INDICATION
  5. CHLORTHALIDONE [Concomitant]
     Indication: PRODUCT USED FOR UNKNOWN INDICATION
  6. LEVOTHYROXINE [Concomitant]
     Indication: PRODUCT USED FOR UNKNOWN INDICATION
  7. SIMETHICONE [Concomitant]
     Indication: PRODUCT USED FOR UNKNOWN INDICATION
  8. SM MULTIPLE VITAMIN WOMENS [Concomitant]
     Indication: PRODUCT USED FOR UNKNOWN INDICATION
  9. ALEVE [Concomitant]
     Indication: PRODUCT USED FOR UNKNOWN INDICATION
  10. SENOKOT-S [Concomitant]
     Indication: PRODUCT USED FOR UNKNOWN INDICATION
  11. OMEGA-3 FISH OIL [Concomitant]
     Indication: PRODUCT USED FOR UNKNOWN INDICATION

REACTIONS (1)
  - Depression [Unknown]
